FAERS Safety Report 5168831-0 (Version None)
Quarter: 2006Q4

REPORT INFORMATION
  Report Type: 
  Country: None (occurrence: None)
  Receive Date: 20061205
  Receipt Date: 20061205
  Transmission Date: 20070319
  Serious: Yes (Other)
  Sender: FDA-Public Use
  Company Number: None

PATIENT
  Age: 50 Year
  Sex: Female
  Weight: 75 kg

DRUGS (4)
  1. VANCOMYCIN [Suspect]
     Indication: CLOSTRIDIUM DIFFICILE COLITIS
     Dosage: 250 MG QID PO
     Route: 048
     Dates: start: 20061128, end: 20061203
  2. VANCOMYCIN [Suspect]
     Dosage: 1 G Q 12 H IV
     Route: 042
     Dates: start: 20061121, end: 20061204
  3. FUROSEMIDE [Concomitant]
  4. METRONIDAZOLE [Concomitant]

REACTIONS (4)
  - ERYTHEMA [None]
  - FLUSHING [None]
  - RASH [None]
  - SKIN BURNING SENSATION [None]
